FAERS Safety Report 14197652 (Version 2)
Quarter: 2017Q4

REPORT INFORMATION
  Report Type: Report from Study
  Country: US (occurrence: US)
  Receive Date: 20171116
  Receipt Date: 20171221
  Transmission Date: 20180321
  Serious: No
  Sender: FDA-Public Use
  Company Number: US-AMGEN-USASL2017172025

PATIENT
  Age: 10 Year
  Sex: Female
  Weight: 43.84 kg

DRUGS (2)
  1. ENBREL [Suspect]
     Active Substance: ETANERCEPT
     Dosage: 50 MG, QWK
     Route: 065
     Dates: start: 2017
  2. ENBREL [Suspect]
     Active Substance: ETANERCEPT
     Indication: JUVENILE IDIOPATHIC ARTHRITIS
     Dosage: 50 MG, QWK
     Route: 065
     Dates: start: 20171113, end: 2017

REACTIONS (6)
  - Nasopharyngitis [Recovered/Resolved]
  - Rash [Recovered/Resolved]
  - Injection site pruritus [Recovered/Resolved]
  - Injection site urticaria [Recovered/Resolved]
  - Off label use [Unknown]
  - Injection site pain [Recovered/Resolved]

NARRATIVE: CASE EVENT DATE: 2017
